FAERS Safety Report 9316468 (Version 1)
Quarter: 2013Q2

REPORT INFORMATION
  Report Type: Report from Study
  Country: CA (occurrence: CA)
  Receive Date: 20130530
  Receipt Date: 20130530
  Transmission Date: 20140414
  Serious: Yes (Other)
  Sender: FDA-Public Use
  Company Number: CA-JNJFOC-20130519966

PATIENT
  Sex: Female
  Weight: 62.2 kg

DRUGS (18)
  1. REMICADE [Suspect]
     Indication: RHEUMATOID ARTHRITIS
     Route: 042
     Dates: start: 20080131
  2. LIPITOR [Concomitant]
     Route: 065
  3. SOTALOL [Concomitant]
     Route: 065
  4. RAMIPRIL [Concomitant]
     Route: 065
  5. AVAPRO [Concomitant]
     Route: 065
  6. FOLIC ACID [Concomitant]
     Route: 065
  7. OMEPRAZOLE [Concomitant]
     Route: 065
  8. ASPIRIN [Concomitant]
     Route: 065
  9. AMITRIPTYLINE [Concomitant]
     Route: 065
  10. PLAQUENIL [Concomitant]
     Route: 065
  11. COLCHICINE [Concomitant]
     Route: 065
  12. METHOTREXATE [Concomitant]
     Route: 065
  13. MORPHINE [Concomitant]
     Route: 065
  14. PREDNISONE [Concomitant]
     Route: 065
  15. VITAMIN B COMPLEX [Concomitant]
     Route: 065
  16. ALLOPURINOL [Concomitant]
     Route: 065
  17. POTASSIUM [Concomitant]
     Route: 065
  18. DIDROCAL [Concomitant]
     Route: 065

REACTIONS (1)
  - Coccidioidomycosis [Unknown]
